FAERS Safety Report 9786614 (Version 1)
Quarter: 2013Q4

REPORT INFORMATION
  Report Type: Spontaneous
  Country: GR (occurrence: GR)
  Receive Date: 20131227
  Receipt Date: 20131227
  Transmission Date: 20140711
  Serious: Yes (Hospitalization)
  Sender: FDA-Public Use
  Company Number: PHHY2013GR152122

PATIENT
  Age: 27 Year
  Sex: Female

DRUGS (2)
  1. MEROPENEM [Suspect]
     Indication: INFECTION
     Dosage: 2 G, TID
  2. VANCOMYCIN [Suspect]
     Indication: INFECTION
     Dosage: 1 G, BID

REACTIONS (3)
  - General physical health deterioration [Recovered/Resolved]
  - Haemodynamic instability [Recovered/Resolved]
  - Maternal exposure during pregnancy [Recovered/Resolved]
